FAERS Safety Report 19372918 (Version 1)
Quarter: 2021Q2

REPORT INFORMATION
  Report Type: Spontaneous
  Country: US (occurrence: US)
  Receive Date: 20210604
  Receipt Date: 20210604
  Transmission Date: 20210717
  Serious: No
  Sender: FDA-Public Use
  Company Number: US-SA-2021SA185588

PATIENT
  Age: 13 Year
  Sex: Female

DRUGS (11)
  1. CLOTRIMAZOLE. [Concomitant]
     Active Substance: CLOTRIMAZOLE
  2. TACROLIMUS. [Concomitant]
     Active Substance: TACROLIMUS
     Indication: DERMATITIS ATOPIC
  3. TYLENOL [Concomitant]
     Active Substance: ACETAMINOPHEN
  4. ERGOCALCIFEROL. [Concomitant]
     Active Substance: ERGOCALCIFEROL
  5. TRIAMCINOLONE ACETONIDE. [Concomitant]
     Active Substance: TRIAMCINOLONE ACETONIDE
     Indication: DERMATITIS ATOPIC
  6. CHILDRENS IBUPROFEN [Concomitant]
     Active Substance: IBUPROFEN
  7. BETAMETHASONE. [Concomitant]
     Active Substance: BETAMETHASONE
     Indication: DERMATITIS ATOPIC
  8. ALBUTEROL SULFATE. [Concomitant]
     Active Substance: ALBUTEROL SULFATE
  9. DUPIXENT [Suspect]
     Active Substance: DUPILUMAB
     Indication: DERMATITIS ATOPIC
     Dosage: QOW
     Route: 050
     Dates: start: 202102
  10. DOXYCYCLINE HYCLATE. [Concomitant]
     Active Substance: DOXYCYCLINE HYCLATE
  11. TRETINOIN. [Concomitant]
     Active Substance: TRETINOIN

REACTIONS (6)
  - Hypersensitivity [Unknown]
  - Eye pruritus [Unknown]
  - Pruritus [Unknown]
  - Conjunctivitis [Unknown]
  - Acne [Unknown]
  - Injection site swelling [Recovered/Resolved]
